FAERS Safety Report 24529943 (Version 1)
Quarter: 2024Q4

REPORT INFORMATION
  Report Type: Spontaneous
  Country: US (occurrence: US)
  Receive Date: 20241021
  Receipt Date: 20241021
  Transmission Date: 20250115
  Serious: No
  Sender: PFIZER
  Company Number: US-PFIZER INC-PV202400135364

PATIENT
  Age: 57 Year
  Sex: Female

DRUGS (12)
  1. IBRANCE [Suspect]
     Active Substance: PALBOCICLIB
     Dosage: 125 MG, DAILY
     Route: 048
  2. TEA TREE OIL [Concomitant]
     Active Substance: TEA TREE OIL
     Dosage: 100% OIL
     Dates: start: 20240910
  3. ALOE VERA POWDER [Concomitant]
     Dosage: UNK
     Dates: start: 20240910
  4. BROMELAINS [Concomitant]
     Active Substance: BROMELAINS
     Dosage: POWD
     Dates: start: 20240910
  5. CURCUMIN [Concomitant]
     Active Substance: CURCUMIN
     Dosage: POWD
     Dates: start: 20240910
  6. LAVENDER OIL [Concomitant]
     Active Substance: LAVENDER OIL
     Dosage: UNK
     Dates: start: 20240910
  7. COENZYME Q10 [Concomitant]
     Active Substance: DIETARY SUPPLEMENT\UBIDECARENONE
     Dosage: UNK
     Dates: start: 20240905
  8. PROCHLORPERAZINE [Concomitant]
     Active Substance: PROCHLORPERAZINE
     Dosage: UNK
     Dates: start: 20240905
  9. VITAMIN C [Concomitant]
     Active Substance: ASCORBIC ACID
     Dosage: EXTENDED
     Route: 048
     Dates: start: 20240905
  10. LETROZOLE [Concomitant]
     Active Substance: LETROZOLE
     Dosage: (BREC)
     Dates: start: 20240905
  11. OMEGA-3-ACID ETHYL ESTERS [Concomitant]
     Active Substance: OMEGA-3-ACID ETHYL ESTERS
     Dosage: UNK
     Route: 048
     Dates: start: 20240905
  12. B COMPLEX PLUS C [Concomitant]
     Dosage: UNK
     Dates: start: 20240905

REACTIONS (3)
  - Fatigue [Not Recovered/Not Resolved]
  - Dyspnoea [Not Recovered/Not Resolved]
  - Pain [Not Recovered/Not Resolved]
